FAERS Safety Report 8501287 (Version 3)
Quarter: 2012Q4

REPORT INFORMATION
  Report Type: Report from Study
  Country: JP (occurrence: JP)
  Receive Date: 20120410
  Receipt Date: 20121008
  Transmission Date: 20130627
  Serious: Yes (Other)
  Sender: FDA-Public Use
  Company Number: JP-CELGENEUS-087-21880-11043488

PATIENT
  Age: 58 Year
  Sex: Female

DRUGS (37)
  1. REVLIMID [Suspect]
     Indication: MULTIPLE MYELOMA
     Dosage: 25 Milligram
     Route: 048
     Dates: start: 20101115, end: 20101123
  2. REVLIMID [Suspect]
     Dosage: 10 Milligram
     Route: 048
     Dates: start: 20101130, end: 20101220
  3. REVLIMID [Suspect]
     Dosage: 10 Milligram
     Route: 048
     Dates: start: 20101229, end: 20110125
  4. REVLIMID [Suspect]
     Dosage: 10 Milligram
     Route: 048
     Dates: start: 20110126, end: 20110216
  5. REVLIMID [Suspect]
     Dosage: 10 Milligram
     Route: 048
     Dates: start: 20110223, end: 20110315
  6. REVLIMID [Suspect]
     Dosage: 10 Milligram
     Route: 048
     Dates: start: 20110324, end: 20110413
  7. REVLIMID [Suspect]
     Dosage: 10 Milligram
     Route: 048
     Dates: start: 20110420, end: 20110510
  8. REVLIMID [Suspect]
     Dosage: 10 Milligram
     Route: 048
     Dates: start: 20110518, end: 20110531
  9. REVLIMID [Suspect]
     Dosage: 10 Milligram
     Route: 048
     Dates: start: 20110608, end: 20110621
  10. REVLIMID [Suspect]
     Dosage: 10 Milligram
     Route: 048
     Dates: start: 20110622, end: 20110705
  11. REVLIMID [Suspect]
     Dosage: 5 Milligram
     Route: 048
     Dates: start: 20110713, end: 20110822
  12. LENADEX [Suspect]
     Indication: MULTIPLE MYELOMA
     Dosage: 40 Milligram
     Route: 048
     Dates: start: 20101115, end: 20101115
  13. LENADEX [Suspect]
     Dosage: 40 Milligram
     Route: 048
     Dates: start: 20101130, end: 20101207
  14. LENADEX [Suspect]
     Dosage: 40 Milligram
     Route: 048
     Dates: start: 20101222, end: 20101225
  15. LENADEX [Suspect]
     Dosage: 40 Milligram
     Route: 048
     Dates: start: 20110112, end: 20110114
  16. LENADEX [Suspect]
     Dosage: 40 Milligram
     Route: 048
     Dates: start: 20110202, end: 20110204
  17. LENADEX [Suspect]
     Dosage: 40 Milligram
     Route: 048
     Dates: start: 20110223, end: 20110224
  18. LENADEX [Suspect]
     Dosage: 40 Milligram
     Route: 048
     Dates: start: 20110307, end: 20110309
  19. LENADEX [Suspect]
     Dosage: 40 Milligram
     Route: 048
     Dates: start: 20110330, end: 20110401
  20. LENADEX [Suspect]
     Dosage: 40 Milligram
     Route: 048
     Dates: start: 20110420, end: 20110615
  21. BAYASPIRIN [Suspect]
     Indication: PROPHYLAXIS
     Dosage: 100 Milligram
     Route: 048
     Dates: start: 20101115
  22. CALONAL [Concomitant]
     Indication: MULTIPLE MYELOMA
     Dosage: 50 Milligram
     Route: 048
     Dates: start: 20110818
  23. PURSENNID [Concomitant]
     Indication: DRUG USE FOR UNKNOWN INDICATION
     Dosage: 12 Milligram
     Route: 048
     Dates: start: 20030328, end: 20101216
  24. LENDORMIN D [Concomitant]
     Indication: DRUG USE FOR UNKNOWN INDICATION
     Dosage: .25 Milligram
     Route: 048
     Dates: start: 20030117
  25. GASTER [Concomitant]
     Indication: PROPHYLAXIS
     Dosage: 20 Milligram
     Route: 048
     Dates: start: 20070618
  26. MS REISHIPPU [Concomitant]
     Indication: MULTIPLE MYELOMA
     Route: 062
     Dates: start: 20101113, end: 20101206
  27. MOHRUS [Concomitant]
     Indication: MULTIPLE MYELOMA
     Route: 062
     Dates: start: 20101115
  28. MAGLAX [Concomitant]
     Indication: DRUG USE FOR UNKNOWN INDICATION
     Dosage: 990 Milligram
     Route: 048
     Dates: start: 20021215
  29. MOHRUS TAPE [Concomitant]
     Indication: MULTIPLE MYELOMA
     Route: 062
     Dates: start: 20101116, end: 20110111
  30. BAKTAR [Concomitant]
     Indication: MULTIPLE MYELOMA
     Dosage: 1 Tablet
     Route: 048
     Dates: start: 20101215
  31. BAKTAR [Concomitant]
     Dosage: 1 Tablet
     Route: 048
     Dates: start: 20110420, end: 20110817
  32. BAKTAR [Concomitant]
     Dosage: .5 Tablet
     Route: 048
     Dates: start: 20110818
  33. BENET [Concomitant]
     Indication: MULTIPLE MYELOMA
     Dosage: 17.5 Milligram
     Route: 048
     Dates: start: 20101215
  34. BENET [Concomitant]
     Dosage: 17.5 Milligram
     Route: 048
     Dates: start: 20110420
  35. LOXONIN [Concomitant]
     Indication: MULTIPLE MYELOMA
     Route: 062
     Dates: start: 20110112
  36. LOXONIN [Concomitant]
     Dosage: 180 Milligram
     Route: 062
     Dates: start: 20110814, end: 20110817
  37. ZOMETA [Concomitant]
     Indication: MULTIPLE MYELOMA
     Dosage: 4 Milligram
     Route: 041
     Dates: start: 20101215, end: 20101215

REACTIONS (13)
  - Liver disorder [Recovering/Resolving]
  - Diplopia [Not Recovered/Not Resolved]
  - Pyrexia [Recovering/Resolving]
  - Urinary tract infection [Recovered/Resolved]
  - Gastrointestinal candidiasis [Recovered/Resolved]
  - Lymphocyte count decreased [Recovering/Resolving]
  - Platelet count decreased [Recovered/Resolved]
  - Anaemia [Recovered/Resolved]
  - Pain in extremity [Recovered/Resolved]
  - Face oedema [Recovered/Resolved]
  - Bone pain [Not Recovered/Not Resolved]
  - Back pain [Recovering/Resolving]
  - Platelet count decreased [Not Recovered/Not Resolved]
